FAERS Safety Report 4654861-1 (Version None)
Quarter: 2005Q2

REPORT INFORMATION
  Report Type: 
  Country: None (occurrence: None)
  Receive Date: 20050506
  Receipt Date: 20050209
  Transmission Date: 20051028
  Serious: Yes (Hospitalization)
  Sender: FDA-Public Use
  Company Number: ES-MERCK-0502ESP00028

PATIENT
  Age: 5 Month
  Sex: Male

DRUGS (1)
  1. SINGULAIR [Suspect]
     Indication: BRONCHIAL HYPERACTIVITY
     Route: 048
     Dates: start: 20050124, end: 20050101

REACTIONS (3)
  - FONTANELLE BULGING [None]
  - LETHARGY [None]
  - MENINGITIS VIRAL [None]
